FAERS Safety Report 8872694 (Version 1)
Quarter: 2012Q4

REPORT INFORMATION
  Report Type: Report from Study
  Country: BR (occurrence: BR)
  Receive Date: 20121030
  Receipt Date: 20121030
  Transmission Date: 20130627
  Serious: Yes (Other)
  Sender: FDA-Public Use
  Company Number: BR-ROCHE-1150265

PATIENT
  Age: 45 Year
  Sex: Male
  Weight: 53 kg

DRUGS (4)
  1. BEVACIZUMAB [Suspect]
     Indication: COLORECTAL CANCER
     Route: 042
     Dates: start: 20111229, end: 20121001
  2. FLUOROURACIL [Suspect]
     Indication: COLORECTAL CANCER
     Route: 065
     Dates: start: 20111229, end: 20121001
  3. LEUCOVORIN [Suspect]
     Indication: COLORECTAL CANCER
     Route: 065
     Dates: start: 20111229, end: 20121001
  4. OXALIPLATIN [Suspect]
     Indication: COLORECTAL CANCER
     Route: 065
     Dates: start: 20111220, end: 20121001

REACTIONS (1)
  - Disease progression [Unknown]
